FAERS Safety Report 6619707-0 (Version None)
Quarter: 2010Q1

REPORT INFORMATION
  Report Type: 
  Country: None (occurrence: None)
  Receive Date: 20100309
  Receipt Date: 20100222
  Transmission Date: 20100710
  Serious: Yes (Other)
  Sender: FDA-Public Use
  Company Number: PHFR2008GB01038

PATIENT
  Sex: Male

DRUGS (1)
  1. CLOZARIL [Suspect]
     Indication: SCHIZOPHRENIA
     Route: 048
     Dates: start: 20021120

REACTIONS (3)
  - ENDOSCOPY [None]
  - OESOPHAGEAL STENOSIS [None]
  - OESOPHAGITIS [None]
